FAERS Safety Report 5761881-2 (Version None)
Quarter: 2008Q2

REPORT INFORMATION
  Report Type: 
  Country: None (occurrence: None)
  Receive Date: 20080603
  Receipt Date: 20080507
  Transmission Date: 20081010
  Serious: Yes (Death)
  Sender: FDA-Public Use
  Company Number: 2008AL003882

PATIENT
  Age: 40 Year
  Sex: Female

DRUGS (2)
  1. DIGOXIN [Suspect]
     Indication: CARDIAC DISORDER
     Dosage: DAILY PO
     Route: 048
  2. NON- SPECIFIED ASTHMA MEDICATION [Concomitant]

REACTIONS (2)
  - DIZZINESS [None]
  - MALAISE [None]
